FAERS Safety Report 8405918-0 (Version None)
Quarter: 2012Q2

REPORT INFORMATION
  Report Type: 
  Country: None (occurrence: None)
  Receive Date: 20120604
  Receipt Date: 20120528
  Transmission Date: 20120825
  Serious: No
  Sender: FDA-Public Use
  Company Number: BR-JNJFOC-20120521110

PATIENT
  Sex: Male

DRUGS (2)
  1. METHADONE HYDROCHLORIDE [Concomitant]
     Indication: ANALGESIC THERAPY
     Route: 065
  2. DURAGESIC-100 [Suspect]
     Indication: ANALGESIC THERAPY
     Route: 062
     Dates: start: 20120101

REACTIONS (2)
  - PAIN [None]
  - TREATMENT NONCOMPLIANCE [None]
